FAERS Safety Report 24399501 (Version 1)
Quarter: 2024Q4

REPORT INFORMATION
  Report Type: Report from Study
  Country: US (occurrence: US)
  Receive Date: 20241005
  Receipt Date: 20241005
  Transmission Date: 20250115
  Serious: Yes (Other)
  Sender: ALEXION PHARMACEUTICALS
  Company Number: US-AstraZeneca-CH-00710680A

PATIENT
  Weight: 88.435 kg

DRUGS (6)
  1. TAGRISSO [Suspect]
     Active Substance: OSIMERTINIB
     Indication: Lung neoplasm malignant
  2. TAGRISSO [Suspect]
     Active Substance: OSIMERTINIB
  3. TAGRISSO [Suspect]
     Active Substance: OSIMERTINIB
  4. TAGRISSO [Suspect]
     Active Substance: OSIMERTINIB
  5. TYLENOL [Concomitant]
     Active Substance: ACETAMINOPHEN
  6. OXYCODONE [Concomitant]
     Active Substance: OXYCODONE

REACTIONS (3)
  - Facial paralysis [Unknown]
  - Seasonal allergy [Unknown]
  - Embolism [Unknown]
